FAERS Safety Report 10529366 (Version 2)
Quarter: 2014Q4

REPORT INFORMATION
  Report Type: Report from Study
  Country: FR (occurrence: FR)
  Receive Date: 20141021
  Receipt Date: 20141215
  Transmission Date: 20150528
  Serious: Yes (Hospitalization)
  Sender: FDA-Public Use
  Company Number: FR-ROCHE-1476912

PATIENT
  Age: 80 Year
  Sex: Female
  Weight: 75 kg

DRUGS (2)
  1. RITUXIMAB [Suspect]
     Active Substance: RITUXIMAB
     Indication: IMMUNE THROMBOCYTOPENIC PURPURA
     Route: 065
  2. RITUXIMAB [Suspect]
     Active Substance: RITUXIMAB
     Dosage: NEW COURSE, LAST DOSE PRIOR TO SAE WAS ON 25/OCT/2010
     Route: 065
     Dates: start: 20101004

REACTIONS (3)
  - Product use issue [Unknown]
  - Demyelinating polyneuropathy [Unknown]
  - Paraesthesia [Recovered/Resolved]

NARRATIVE: CASE EVENT DATE: 201202
